FAERS Safety Report 8276630-6 (Version None)
Quarter: 2012Q2

REPORT INFORMATION
  Report Type: 
  Country: None (occurrence: None)
  Receive Date: 20120412
  Receipt Date: 20120407
  Transmission Date: 20120825
  Serious: Yes (Other)
  Sender: FDA-Public Use
  Company Number: PHHY2012BR030240

PATIENT
  Sex: Female

DRUGS (2)
  1. ONBREZ [Suspect]
     Indication: PNEUMONIA
  2. ONBREZ [Suspect]
     Indication: EMPHYSEMA
     Dosage: 150 UG, UNK

REACTIONS (5)
  - PHARYNGITIS [None]
  - DYSPNOEA [None]
  - SKIN DISCOLOURATION [None]
  - LARYNGITIS [None]
  - UNDERDOSE [None]
